FAERS Safety Report 13046623 (Version 11)
Quarter: 2017Q4

REPORT INFORMATION
  Report Type: Spontaneous
  Country: US (occurrence: US)
  Receive Date: 20161220
  Receipt Date: 20171026
  Transmission Date: 20180320
  Serious: Yes (Hospitalization, Other)
  Sender: FDA-Public Use
  Company Number: US-UNITED THERAPEUTICS-UNT-2016-019066

PATIENT
  Age: 51 Year
  Sex: Female
  Weight: 58.96 kg

DRUGS (13)
  1. LASIX [Concomitant]
     Active Substance: FUROSEMIDE
     Indication: PRODUCT USED FOR UNKNOWN INDICATION
     Dosage: 40 MG, BID
     Route: 048
  2. LEVOTHYROXINE. [Concomitant]
     Active Substance: LEVOTHYROXINE
     Indication: PRODUCT USED FOR UNKNOWN INDICATION
     Dosage: 137 ?G, QD
     Route: 048
  3. TYVASO [Suspect]
     Active Substance: TREPROSTINIL
     Indication: PULMONARY ARTERIAL HYPERTENSION
     Dosage: 18-54 ?G , QID
     Dates: start: 20130919
  4. LETAIRIS [Concomitant]
     Active Substance: AMBRISENTAN
     Indication: PRODUCT USED FOR UNKNOWN INDICATION
     Dosage: 10 MG, QD
     Route: 048
  5. TYVASO [Suspect]
     Active Substance: TREPROSTINIL
     Dosage: UNK
  6. FERROUS SULFATE. [Concomitant]
     Active Substance: FERROUS SULFATE
     Indication: PRODUCT USED FOR UNKNOWN INDICATION
     Dosage: 325 MG, BID
     Route: 048
  7. ZOFRAN [Concomitant]
     Active Substance: ONDANSETRON HYDROCHLORIDE
     Indication: PRODUCT USED FOR UNKNOWN INDICATION
     Dosage: 4 MG, Q8H PRN
     Route: 048
  8. COUMADIN [Concomitant]
     Active Substance: WARFARIN SODIUM
     Indication: PRODUCT USED FOR UNKNOWN INDICATION
     Route: 065
  9. TYVASO [Suspect]
     Active Substance: TREPROSTINIL
     Dosage: UNK
  10. TYVASO [Suspect]
     Active Substance: TREPROSTINIL
     Dosage: UNK
  11. MICRO-K [Concomitant]
     Active Substance: POTASSIUM CHLORIDE
     Indication: PRODUCT USED FOR UNKNOWN INDICATION
     Dosage: 20 MEQ, BID
     Route: 048
  12. TYVASO [Suspect]
     Active Substance: TREPROSTINIL
     Dosage: 54 ?G , QID
  13. TYVASO [Suspect]
     Active Substance: TREPROSTINIL
     Dosage: UNK

REACTIONS (10)
  - Thinking abnormal [Unknown]
  - Device dislocation [Recovered/Resolved]
  - Cholelithiasis [Unknown]
  - Intestinal obstruction [Unknown]
  - Dyspnoea exertional [Unknown]
  - Hepatic cancer [Unknown]
  - Cyst [Unknown]
  - Malaise [Unknown]
  - Treatment noncompliance [Unknown]
  - Gallbladder cancer [Unknown]

NARRATIVE: CASE EVENT DATE: 20161210
